FAERS Safety Report 20247129 (Version 1)
Quarter: 2021Q4

REPORT INFORMATION
  Report Type: Spontaneous
  Country: US (occurrence: None)
  Receive Date: 20211228
  Receipt Date: 20211228
  Transmission Date: 20220303
  Serious: Yes (Other)
  Sender: FDA-Public Use
  Company Number: None

PATIENT
  Age: 41 Year
  Sex: Male

DRUGS (1)
  1. JIVI [Suspect]
     Active Substance: DAMOCTOCOG ALFA PEGOL
     Dosage: FREQUENCY : EVERY OTHER DAY;?OTHER ROUTE : EVERY 4 DAYS OR PRN; INFUSE 5171 UNITS ( 1 VIAL OF 2108 A
     Route: 050

REACTIONS (3)
  - COVID-19 [None]
  - Cough [None]
  - Haemorrhage [None]

NARRATIVE: CASE EVENT DATE: 20211215
